FAERS Safety Report 8611109-0 (Version None)
Quarter: 2012Q3

REPORT INFORMATION
  Report Type: 
  Country: None (occurrence: None)
  Receive Date: 20120808
  Receipt Date: 20120727
  Transmission Date: 20120928
  Serious: Yes (Other)
  Sender: FDA-Public Use
  Company Number: TH-INDICUS PHARMA-000014

PATIENT
  Age: 45 Year
  Sex: Female

DRUGS (1)
  1. METFORMIN HCL [Suspect]
     Indication: DIABETES MELLITUS
     Dosage: 1500.00 MG-1.0DAYS/ORAL
     Route: 048

REACTIONS (1)
  - INSOMNIA [None]
